FAERS Safety Report 6264665-4 (Version None)
Quarter: 2009Q3

REPORT INFORMATION
  Report Type: 
  Country: None (occurrence: None)
  Receive Date: 20090710
  Receipt Date: 20090707
  Transmission Date: 20100115
  Serious: Yes (Life-Threatening)
  Sender: FDA-Public Use
  Company Number: US-ASTRAZENECA-2009UW19194

PATIENT
  Age: 64 Year
  Sex: Male

DRUGS (1)
  1. METOPROLOL SUCCINATE [Suspect]
     Indication: CARDIAC FAILURE
     Route: 048

REACTIONS (4)
  - CARDIAC FAILURE [None]
  - HEART RATE INCREASED [None]
  - PALPITATIONS [None]
  - WEIGHT INCREASED [None]
